FAERS Safety Report 22206154 (Version 1)
Quarter: 2023Q2

REPORT INFORMATION
  Report Type: Spontaneous
  Country: US (occurrence: None)
  Receive Date: 20230412
  Receipt Date: 20230412
  Transmission Date: 20230721
  Serious: Yes (Death)
  Sender: FDA-Public Use
  Company Number: None

PATIENT
  Age: 79 Year
  Sex: Male
  Weight: 99.4 kg

DRUGS (3)
  1. CARVYKTI [Suspect]
     Active Substance: CILTACABTAGENE AUTOLEUCEL
     Indication: Plasma cell myeloma
  2. FLUDARABINE [Suspect]
     Active Substance: FLUDARABINE PHOSPHATE
     Indication: Lymphocyte adoptive therapy
  3. CYCLOPHOSPHAMIDE [Suspect]
     Active Substance: CYCLOPHOSPHAMIDE
     Indication: Lymphocyte adoptive therapy

REACTIONS (7)
  - Cytokine release syndrome [None]
  - COVID-19 pneumonia [None]
  - Mental status changes [None]
  - Bronchopulmonary aspergillosis [None]
  - Respiratory failure [None]
  - General physical health deterioration [None]
  - Immunodeficiency [None]

NARRATIVE: CASE EVENT DATE: 20221013
